FAERS Safety Report 16460351 (Version 1)
Quarter: 2019Q2

REPORT INFORMATION
  Report Type: Spontaneous
  Country: US (occurrence: US)
  Receive Date: 20190620
  Receipt Date: 20190620
  Transmission Date: 20190711
  Serious: No
  Sender: FDA-Public Use
  Company Number: US-PFIZER INC-2019254260

PATIENT
  Age: 79 Year
  Sex: Female

DRUGS (1)
  1. SODIUM CHLORIDE. [Suspect]
     Active Substance: SODIUM CHLORIDE
     Indication: ADJUSTED CALCIUM INCREASED
     Dosage: UNK

REACTIONS (2)
  - Mental disorder [Unknown]
  - Blood calcium decreased [Unknown]
